FAERS Safety Report 9353188 (Version 1)
Quarter: 2013Q2

REPORT INFORMATION
  Report Type: Not Available
  Country: FR (occurrence: FR)
  Receive Date: 20130618
  Receipt Date: 20130618
  Transmission Date: 20140414
  Serious: Yes (Hospitalization)
  Sender: FDA-Public Use
  Company Number: FR-ASTELLAS-2013EU005163

PATIENT
  Age: 31 Year
  Sex: Female

DRUGS (5)
  1. ADVAGRAF [Suspect]
     Indication: IMMUNOSUPPRESSION
     Dosage: 10 MG, UNKNOWN/D
     Route: 065
     Dates: start: 20120430, end: 20120807
  2. ADVAGRAF [Suspect]
     Dosage: 12 MG, UNKNOWN/D
     Route: 065
  3. PROGRAF [Suspect]
     Indication: IMMUNOSUPPRESSION
     Dosage: 11 MG, UNKNOWN/D
     Route: 065
     Dates: start: 20110331, end: 20120430
  4. PROGRAF [Suspect]
     Dosage: 12 MG, UNKNOWN/D
     Route: 065
  5. CELLCEPT                           /01275102/ [Concomitant]
     Indication: IMMUNOSUPPRESSION
     Dosage: 500 MG, BID
     Route: 065

REACTIONS (2)
  - Incorrect dose administered [Not Recovered/Not Resolved]
  - Transplant rejection [Not Recovered/Not Resolved]
